FAERS Safety Report 12074614 (Version 2)
Quarter: 2016Q1

REPORT INFORMATION
  Report Type: Spontaneous
  Country: GB (occurrence: GB)
  Receive Date: 20160212
  Receipt Date: 20160302
  Transmission Date: 20160526
  Serious: Yes (Other)
  Sender: FDA-Public Use
  Company Number: GB-BAUSCH-BL-2016-002797

PATIENT
  Age: 6 Decade
  Sex: Female

DRUGS (1)
  1. MINIMS PROXYMETACAINE [Suspect]
     Active Substance: PROPARACAINE HYDROCHLORIDE
     Indication: INTRAOCULAR PRESSURE TEST
     Dosage: ONE DROP IN EACH EYE
     Route: 065
     Dates: start: 20160125, end: 20160125

REACTIONS (4)
  - Eye swelling [Recovered/Resolved]
  - Eye pain [Recovered/Resolved]
  - Ocular hyperaemia [Recovered/Resolved]
  - Hypersensitivity [Recovered/Resolved]

NARRATIVE: CASE EVENT DATE: 20160125
